FAERS Safety Report 5224050-0 (Version None)
Quarter: 2007Q1

REPORT INFORMATION
  Report Type: 
  Country: None (occurrence: None)
  Receive Date: 20070130
  Receipt Date: 20070116
  Transmission Date: 20070707
  Serious: Yes (Hospitalization, Other)
  Sender: FDA-Public Use
  Company Number: US-AMGEN-STX203398

PATIENT
  Sex: Female
  Weight: 74 kg

DRUGS (4)
  1. ENBREL [Suspect]
     Indication: RHEUMATOID ARTHRITIS
     Route: 058
     Dates: start: 20010501, end: 20050701
  2. ENBREL [Suspect]
     Route: 058
     Dates: start: 20050701
  3. FOSAMAX [Concomitant]
  4. CALCIUM [Concomitant]

REACTIONS (8)
  - CARPAL TUNNEL SYNDROME [None]
  - COLON CANCER [None]
  - INJECTION SITE BRUISING [None]
  - LIVER FUNCTION TEST ABNORMAL [None]
  - PERIARTHRITIS [None]
  - RED BLOOD CELL SEDIMENTATION RATE INCREASED [None]
  - RHEUMATOID ARTHRITIS [None]
  - VIRAL INFECTION [None]
